FAERS Safety Report 12500504 (Version 1)
Quarter: 2016Q2

REPORT INFORMATION
  Report Type: Spontaneous
  Country: US (occurrence: US)
  Receive Date: 20160627
  Receipt Date: 20160627
  Transmission Date: 20160815
  Serious: No
  Sender: FDA-Public Use
  Company Number: US-BEH-2016070369

PATIENT
  Sex: Female
  Weight: 66.21 kg

DRUGS (23)
  1. ZOCOR [Concomitant]
     Active Substance: SIMVASTATIN
  2. ALEVE [Concomitant]
     Active Substance: NAPROXEN SODIUM
  3. DIPHENHYDRAMINE. [Concomitant]
     Active Substance: DIPHENHYDRAMINE
  4. NYSTATIN. [Concomitant]
     Active Substance: NYSTATIN
  5. COREG [Concomitant]
     Active Substance: CARVEDILOL
  6. OXYGEN. [Concomitant]
     Active Substance: OXYGEN
  7. LMX                                /00033401/ [Concomitant]
  8. VITAMIN C [Concomitant]
     Active Substance: ASCORBIC ACID
  9. VITAMIN D                          /00107901/ [Concomitant]
     Active Substance: ERGOCALCIFEROL
  10. NIFEDICAL XL [Concomitant]
     Active Substance: NIFEDIPINE
  11. TRIAMTERENE. [Concomitant]
     Active Substance: TRIAMTERENE
  12. VENTOLIN [Concomitant]
     Active Substance: ALBUTEROL SULFATE
  13. ZEMAIRA [Suspect]
     Active Substance: .ALPHA.1-PROTEINASE INHIBITOR HUMAN
     Dosage: UNK
     Route: 042
     Dates: start: 20130102
  14. CYCLOBENZAPRINE [Concomitant]
     Active Substance: CYCLOBENZAPRINE
  15. ADVAIR HFA [Concomitant]
     Active Substance: FLUTICASONE PROPIONATE\SALMETEROL XINAFOATE
  16. FISH OIL [Concomitant]
     Active Substance: FISH OIL
  17. SINGULAIR [Concomitant]
     Active Substance: MONTELUKAST SODIUM
  18. OMEPRAZOLE. [Concomitant]
     Active Substance: OMEPRAZOLE
  19. SODIUM CHLORIDE. [Concomitant]
     Active Substance: SODIUM CHLORIDE
  20. LEVOXYL [Concomitant]
     Active Substance: LEVOTHYROXINE SODIUM
  21. CLARINEX                           /01202601/ [Concomitant]
     Active Substance: LORATADINE\PSEUDOEPHEDRINE SULFATE
  22. ZEMAIRA [Suspect]
     Active Substance: .ALPHA.1-PROTEINASE INHIBITOR HUMAN
     Indication: ALPHA-1 ANTI-TRYPSIN DEFICIENCY
     Dosage: 60 MG/KG, QW (1048 MG/VL)
     Route: 042
  23. EPIPEN [Concomitant]
     Active Substance: EPINEPHRINE

REACTIONS (1)
  - Upper respiratory tract infection [Unknown]
